FAERS Safety Report 10245340 (Version 1)
Quarter: 2014Q2

REPORT INFORMATION
  Report Type: Report from Study
  Country: ES (occurrence: ES)
  Receive Date: 20140618
  Receipt Date: 20140618
  Transmission Date: 20141212
  Serious: Yes (Other)
  Sender: FDA-Public Use
  Company Number: ES-ROCHE-1417931

PATIENT
  Age: 72 Year
  Sex: Female

DRUGS (9)
  1. CLONAZEPAM [Suspect]
     Indication: PRODUCT USED FOR UNKNOWN INDICATION
     Route: 048
     Dates: start: 20140514, end: 20140519
  2. DUPHALAC [Concomitant]
     Route: 048
  3. SINTROM [Concomitant]
     Route: 048
  4. TRANGOREX [Concomitant]
     Route: 048
  5. LOBIVON [Concomitant]
     Route: 048
  6. PRAVASTATINA [Concomitant]
     Route: 048
  7. CERTICAN [Concomitant]
     Route: 048
  8. OMEPRAZOL [Concomitant]
     Route: 048
  9. ALLOPURINOL [Concomitant]
     Route: 048

REACTIONS (4)
  - Depressed level of consciousness [Recovered/Resolved]
  - Speech disorder [Recovered/Resolved]
  - Dizziness [Recovered/Resolved]
  - Asthenia [Recovered/Resolved]
